FAERS Safety Report 19575942 (Version 1)
Quarter: 2021Q3

REPORT INFORMATION
  Report Type: Spontaneous
  Country: RS (occurrence: RS)
  Receive Date: 20210718
  Receipt Date: 20210718
  Transmission Date: 20211014
  Serious: Yes (Disabling)
  Sender: FDA-Public Use
  Company Number: None

PATIENT
  Age: 17 Year
  Sex: Female
  Weight: 63 kg

DRUGS (4)
  1. ELOCOM [Suspect]
     Active Substance: MOMETASONE FUROATE
     Indication: DERMATITIS ATOPIC
  2. ZINC. [Concomitant]
     Active Substance: ZINC
  3. VITAMIN D [Concomitant]
     Active Substance: VITAMIN D NOS
  4. VITAMIN C [Concomitant]
     Active Substance: ASCORBIC ACID

REACTIONS (15)
  - Drug ineffective [None]
  - Pruritus [None]
  - Skin atrophy [None]
  - Depressed mood [None]
  - Quality of life decreased [None]
  - Pain [None]
  - Steroid dependence [None]
  - Alopecia [None]
  - Withdrawal syndrome [None]
  - Inflammation [None]
  - Lymphadenopathy [None]
  - Neuralgia [None]
  - Fatigue [None]
  - Dry skin [None]
  - Insomnia [None]

NARRATIVE: CASE EVENT DATE: 20200211
